FAERS Safety Report 23084987 (Version 3)
Quarter: 2023Q4

REPORT INFORMATION
  Report Type: Report from Study
  Country: CN (occurrence: CN)
  Receive Date: 20231019
  Receipt Date: 20231113
  Transmission Date: 20240110
  Serious: Yes (Hospitalization)
  Sender: FDA-Public Use
  Company Number: CN-Eisai Medical Research-EC-2023-146392

PATIENT
  Age: 68 Year
  Sex: Female
  Weight: 51 kg

DRUGS (7)
  1. LECANEMAB [Suspect]
     Active Substance: LECANEMAB
     Indication: Dementia Alzheimer^s type
     Dosage: PLACEBO
     Route: 042
     Dates: start: 20211125, end: 202305
  2. LECANEMAB [Suspect]
     Active Substance: LECANEMAB
     Dosage: OPEN LABEL
     Route: 042
     Dates: start: 20230524, end: 20230727
  3. DONEPEZIL [Concomitant]
     Active Substance: DONEPEZIL
     Indication: Cognitive disorder
     Route: 048
     Dates: start: 202105
  4. BENAZEPRIL [Concomitant]
     Active Substance: BENAZEPRIL HYDROCHLORIDE
     Indication: Hypertension
     Route: 048
     Dates: start: 20210222
  5. ATORVASTATIN [Concomitant]
     Active Substance: ATORVASTATIN
     Indication: Carotid arteriosclerosis
     Route: 048
     Dates: start: 202106
  6. ROPINIROLE [Concomitant]
     Active Substance: ROPINIROLE
     Indication: Parkinson^s disease
     Route: 048
     Dates: start: 202105
  7. VITAMIN D DROPS [Concomitant]
     Indication: Vitamin D deficiency
     Route: 048
     Dates: start: 202105

REACTIONS (2)
  - Epilepsy [Recovering/Resolving]
  - Amyloid related imaging abnormalities [Recovering/Resolving]

NARRATIVE: CASE EVENT DATE: 20230727
